FAERS Safety Report 6407572-6 (Version None)
Quarter: 2009Q4

REPORT INFORMATION
  Report Type: 
  Country: None (occurrence: None)
  Receive Date: 20091015
  Receipt Date: 20091001
  Transmission Date: 20100525
  Serious: Yes (Other)
  Sender: FDA-Public Use
  Company Number: 8052914

PATIENT
  Age: 83 Year
  Sex: Male

DRUGS (4)
  1. KEPPRA [Suspect]
     Dosage: 2000 MG /D A FEW YEARS
     Dates: end: 20090101
  2. KEPPRA [Suspect]
     Dosage: 4000 MG /D
     Dates: start: 20090101
  3. LAMOTRIGINE [Suspect]
     Dosage: 200 MG /D A FEW YEARS
     Dates: start: 20090101
  4. LAMOTRIGINE [Suspect]
     Dosage: 400 MG /D
     Dates: start: 20090101

REACTIONS (4)
  - ASTHENIA [None]
  - CEREBROVASCULAR ACCIDENT [None]
  - EPILEPSY [None]
  - WEIGHT DECREASED [None]
